FAERS Safety Report 10054871 (Version 3)
Quarter: 2014Q2

REPORT INFORMATION
  Report Type: Spontaneous
  Country: CL (occurrence: CL)
  Receive Date: 20140402
  Receipt Date: 20140408
  Transmission Date: 20141212
  Serious: Yes (Other)
  Sender: FDA-Public Use
  Company Number: PHHY2014CL039022

PATIENT
  Age: 28 Year
  Sex: Female

DRUGS (1)
  1. GILENYA [Suspect]
     Indication: MULTIPLE SCLEROSIS
     Dosage: 0.5 MG, QD
     Dates: start: 20130830, end: 20140404

REACTIONS (7)
  - Oesophageal candidiasis [Unknown]
  - Gastritis erosive [Unknown]
  - Gastrooesophageal reflux disease [Unknown]
  - Epstein-Barr virus antibody positive [Unknown]
  - Lymphadenopathy [Recovered/Resolved]
  - White blood cell count decreased [Unknown]
  - Lymphocyte count decreased [Unknown]
